FAERS Safety Report 15523773 (Version 1)
Quarter: 2018Q4

REPORT INFORMATION
  Report Type: Spontaneous
  Country: FR (occurrence: FR)
  Receive Date: 20181018
  Receipt Date: 20181018
  Transmission Date: 20190205
  Serious: Yes (Death)
  Sender: FDA-Public Use
  Company Number: FR-TEVA-2018-FR-965385

PATIENT
  Age: 64 Year
  Sex: Male
  Weight: 79 kg

DRUGS (25)
  1. DACRYOSERUM [Concomitant]
     Active Substance: BORIC ACID\SODIUM BORATE
     Dosage: 1 DOSAGE FORMS DAILY;
     Route: 031
  2. NOCTAMIDE 2 MG, COMPRIM? S?CABLE [Concomitant]
     Active Substance: LORMETAZEPAM
     Dosage: 4 MILLIGRAM DAILY;
     Route: 048
  3. AMIKLIN [Concomitant]
     Active Substance: AMIKACIN SULFATE
     Route: 065
     Dates: start: 20180814
  4. FLUDROCORTISONE [Concomitant]
     Active Substance: FLUDROCORTISONE
     Route: 065
     Dates: start: 20180816
  5. VISMED [Concomitant]
     Active Substance: HYALURONATE SODIUM
     Dosage: 1 DOSAGE FORMS DAILY;
     Route: 031
  6. GLUCONATE DE POTASSIUM [Concomitant]
     Dosage: 6 DOSAGE FORMS DAILY;
     Route: 048
  7. BACTRIM [Concomitant]
     Active Substance: SULFAMETHOXAZOLE\TRIMETHOPRIM
     Dosage: 400 MILLIGRAM DAILY;
     Route: 048
  8. TAZOCILLINE [Concomitant]
     Active Substance: PIPERACILLIN SODIUM\TAZOBACTAM SODIUM
     Route: 065
     Dates: start: 20180806
  9. MOPRAL 20 MG, COMPRIM? GASTRO-R?SISTANT [Concomitant]
     Active Substance: OMEPRAZOLE
     Indication: GASTROOESOPHAGEAL REFLUX DISEASE
     Dosage: 20 MILLIGRAM DAILY;
     Route: 048
  10. DIFFU K [Concomitant]
     Active Substance: POTASSIUM CHLORIDE
     Dosage: 12 DOSAGE FORMS DAILY;
     Route: 048
  11. MIDAZOLAM [Concomitant]
     Active Substance: MIDAZOLAM HYDROCHLORIDE
     Route: 042
     Dates: start: 20180806
  12. BARACLUDE 0,5 MG, COMPRIM? PELLICUL? [Concomitant]
     Indication: HEPATITIS B VIRUS TEST POSITIVE
     Dosage: 1 DOSAGE FORMS DAILY;
     Route: 048
     Dates: start: 20180412
  13. TIENAM [Concomitant]
     Active Substance: CILASTATIN SODIUM\IMIPENEM
     Route: 065
     Dates: start: 20180814
  14. AUGMENTIN [Concomitant]
     Active Substance: AMOXICILLIN\CLAVULANATE POTASSIUM
     Route: 065
     Dates: start: 20180809, end: 20180810
  15. DOBUTAMINE [Concomitant]
     Active Substance: DOBUTAMINE\DOBUTAMINE HYDROCHLORIDE
     Indication: ORTHOPNOEA
     Route: 042
     Dates: start: 20180804
  16. NORADRENALINE [Concomitant]
     Active Substance: NOREPINEPHRINE
     Route: 011
     Dates: start: 20180806
  17. CARTEOL [Concomitant]
     Active Substance: CARTEOLOL
     Dosage: 1 DOSAGE FORMS DAILY;
     Route: 031
  18. XANAX [Concomitant]
     Active Substance: ALPRAZOLAM
     Dosage: 3 MILLIGRAM DAILY;
     Route: 048
  19. CYCLOPHOSPHAMIDE. [Concomitant]
     Active Substance: CYCLOPHOSPHAMIDE
     Indication: MANTLE CELL LYMPHOMA
     Route: 042
     Dates: end: 20180709
  20. ZELITREX 500 MG, COMPRIM? ENROB? [Concomitant]
     Active Substance: VALACYCLOVIR HYDROCHLORIDE
     Dosage: 500 MILLIGRAM DAILY;
     Route: 048
  21. CORTANCYL [Concomitant]
     Active Substance: PREDNISONE
     Indication: MANTLE CELL LYMPHOMA
     Route: 048
     Dates: start: 20180709, end: 20180713
  22. DOXORUBICINE [Suspect]
     Active Substance: DOXORUBICIN
     Indication: MANTLE CELL LYMPHOMA
     Route: 042
     Dates: start: 20180412, end: 20180709
  23. HYDROCORTISONE. [Concomitant]
     Active Substance: HYDROCORTISONE
     Route: 065
     Dates: start: 20180808, end: 20180813
  24. RITUXIMAB ((MAMMIFERE/HAMSTER/CELLULES CHO)) [Concomitant]
     Active Substance: RITUXIMAB
     Indication: MANTLE CELL LYMPHOMA
     Route: 042
     Dates: end: 20180709
  25. FUROSEMIDE. [Concomitant]
     Active Substance: FUROSEMIDE
     Dosage: 500 MILLIGRAM DAILY;
     Route: 042

REACTIONS (2)
  - Cardiac failure [Fatal]
  - Cardiogenic shock [Fatal]

NARRATIVE: CASE EVENT DATE: 20180803
